FAERS Safety Report 5655277-1 (Version None)
Quarter: 2008Q1

REPORT INFORMATION
  Report Type: 
  Country: None (occurrence: None)
  Receive Date: 20080307
  Receipt Date: 20080303
  Transmission Date: 20080703
  Serious: Yes (Other)
  Sender: FDA-Public Use
  Company Number: B0510401A

PATIENT
  Sex: Female

DRUGS (2)
  1. KIVEXA [Suspect]
     Indication: HIV INFECTION
     Route: 048
  2. ZIAGEN [Suspect]
     Indication: HIV INFECTION
     Route: 048

REACTIONS (3)
  - DYSPEPSIA [None]
  - LIP AND/OR ORAL CAVITY CANCER [None]
  - NAUSEA [None]
